FAERS Safety Report 21936817 (Version 6)
Quarter: 2023Q1

REPORT INFORMATION
  Report Type: Spontaneous
  Country: US (occurrence: US)
  Receive Date: 20230201
  Receipt Date: 20230308
  Transmission Date: 20230417
  Serious: No
  Sender: FDA-Public Use
  Company Number: US-PFIZER INC-202300046492

PATIENT
  Age: 58 Year
  Sex: Female
  Weight: 53.07 kg

DRUGS (4)
  1. PAXLOVID [Interacting]
     Active Substance: NIRMATRELVIR\RITONAVIR
     Indication: COVID-19 treatment
     Dosage: 3 DF, 2X/DAY (TWO 150 MG NIRMATRELVIR AND ONE 100 MILLIGRAM RITONAVIR; 2X/DAY FOR 5 DAYS)
     Route: 048
  2. BUPRENORPHINE [Interacting]
     Active Substance: BUPRENORPHINE
     Indication: Pain
     Dosage: UNK
  3. HYDROXYZINE [Interacting]
     Active Substance: HYDROXYZINE HYDROCHLORIDE
     Dosage: UNK
  4. INSULIN NOS [Concomitant]
     Active Substance: INSULIN NOS
     Indication: Diabetes mellitus
     Dosage: UNK

REACTIONS (7)
  - Drug interaction [Unknown]
  - Paraesthesia [Unknown]
  - Hot flush [Unknown]
  - Pain [Unknown]
  - Headache [Unknown]
  - Burning sensation [Unknown]
  - Muscular weakness [Unknown]
